FAERS Safety Report 18581721 (Version 1)
Quarter: 2020Q4

REPORT INFORMATION
  Report Type: Report from Study
  Country: None (occurrence: US)
  Receive Date: 20201205
  Receipt Date: 20201205
  Transmission Date: 20210114
  Serious: Yes (Other)
  Sender: FDA-Public Use
  Company Number: US-ABBVIE-20K-163-3676913-00

PATIENT
  Sex: Female

DRUGS (2)
  1. IMBRUVICA [Suspect]
     Active Substance: IBRUTINIB
     Indication: CHRONIC LYMPHOCYTIC LEUKAEMIA
     Dosage: ALTERNATING DAILY DOSES 280MG EVERY OTHER DAY, AND 420MG THE ALTERNATING DAYS.
     Route: 048
  2. IMBRUVICA [Suspect]
     Active Substance: IBRUTINIB
     Dosage: ALTERNATING DAILY DOSES 280MG EVERY OTHER DAY, AND 420MG THE ALTERNATING DAYS.
     Route: 048

REACTIONS (1)
  - Knee arthroplasty [Recovering/Resolving]
